FAERS Safety Report 9441924 (Version 2)
Quarter: 2013Q3

REPORT INFORMATION
  Report Type: Spontaneous
  Country: CH (occurrence: None)
  Receive Date: 20130801
  Receipt Date: 20130814
  Transmission Date: 20140515
  Serious: Yes (Hospitalization, Other)
  Sender: FDA-Public Use
  Company Number: 20130354

PATIENT
  Age: 38 Year
  Sex: Male
  Weight: 80 kg

DRUGS (4)
  1. VENOFER (IRON SUCROSE INJECTION-VIFOR) (IRON SUCROSE INJECTION) 20 MG/ML [Suspect]
     Indication: BLOOD IRON DECREASED
     Dosage: 100 MG IN 50 ML NS OVER 30 MIN
     Route: 041
     Dates: start: 20130531, end: 20130531
  2. VENOFER (IRON SUCROSE INJECTION-VIFOR) (IRON SUCROSE INJECTION) 20 MG/ML [Suspect]
     Indication: RENAL FAILURE CHRONIC
     Dosage: 100 MG IN 50 ML NS OVER 30 MIN
     Route: 041
     Dates: start: 20130531, end: 20130531
  3. VENOFER (IRON SUCROSE INJECTION-VIFOR) (IRON SUCROSE INJECTION) 20 MG/ML [Suspect]
     Indication: BLOOD IRON DECREASED
     Dosage: 100 MG IN 50 ML NS OVER 45 MIN
     Route: 041
     Dates: start: 20130607, end: 20130607
  4. VENOFER (IRON SUCROSE INJECTION-VIFOR) (IRON SUCROSE INJECTION) 20 MG/ML [Suspect]
     Indication: RENAL FAILURE CHRONIC
     Dosage: 100 MG IN 50 ML NS OVER 45 MIN
     Route: 041
     Dates: start: 20130607, end: 20130607

REACTIONS (7)
  - Dyspnoea [None]
  - Dysgeusia [None]
  - Nausea [None]
  - Hypotension [None]
  - Lower respiratory tract infection [None]
  - Pneumonia [None]
  - Haemoglobin decreased [None]
